FAERS Safety Report 22006475 (Version 2)
Quarter: 2023Q1

REPORT INFORMATION
  Report Type: Spontaneous
  Country: US (occurrence: US)
  Receive Date: 20230217
  Receipt Date: 20230224
  Transmission Date: 20230418
  Serious: Yes (Life-Threatening, Other)
  Sender: FDA-Public Use
  Company Number: US-FreseniusKabi-FK202301928

PATIENT
  Age: 64 Year
  Sex: Male
  Weight: 105.4 kg

DRUGS (2)
  1. PROTAMINE SULFATE [Suspect]
     Active Substance: PROTAMINE SULFATE
     Indication: Product used for unknown indication
     Dosage: EXACT HOUR/MINUTE PROTAMINE WAS GIVEN:1235?1245?EXACT ACT (ACTIVATED CLOTTING TIME) JUST PRIOR TO PR
     Route: 040
     Dates: start: 20230209
  2. HEPARIN [Concomitant]
     Active Substance: HEPARIN SODIUM
     Indication: Product used for unknown indication
     Dosage: THE EXACT DOSES OF HEPARIN USED AND EXACT TIMES HEPARIN WAS GIVEN: 42000 U AT 1035
     Dates: start: 20230209

REACTIONS (1)
  - Hypotension [Recovered/Resolved]

NARRATIVE: CASE EVENT DATE: 20230209
